FAERS Safety Report 15607533 (Version 1)
Quarter: 2018Q4

REPORT INFORMATION
  Report Type: Spontaneous
  Country: FR (occurrence: FR)
  Receive Date: 20181112
  Receipt Date: 20181112
  Transmission Date: 20190205
  Serious: Yes (Other)
  Sender: FDA-Public Use
  Company Number: FR-PFIZER INC-2018453445

PATIENT
  Age: 75 Year
  Sex: Female
  Weight: 58 kg

DRUGS (8)
  1. PRIMPERAN [Concomitant]
     Active Substance: METOCLOPRAMIDE HYDROCHLORIDE
  2. OXALIPLATIN. [Suspect]
     Active Substance: OXALIPLATIN
     Indication: METASTASES TO PERITONEUM
     Dosage: 100 MG, UNK
     Route: 041
     Dates: start: 20180406, end: 20180710
  3. CHARDON MARIE [Concomitant]
  4. TIORFAN [Concomitant]
     Active Substance: RACECADOTRIL
  5. EUTHYRAL [Concomitant]
     Active Substance: LEVOTHYROXINE SODIUM\LIOTHYRONINE SODIUM
  6. SMECTA [DIOSMECTITE] [Concomitant]
  7. SOLUPRED [PREDNISOLONE] [Concomitant]
     Active Substance: PREDNISOLONE
  8. EMEND [Concomitant]
     Active Substance: APREPITANT

REACTIONS (1)
  - Hepatitis cholestatic [Recovering/Resolving]

NARRATIVE: CASE EVENT DATE: 20180611
